FAERS Safety Report 6555328-6 (Version None)
Quarter: 2010Q1

REPORT INFORMATION
  Report Type: 
  Country: None (occurrence: None)
  Receive Date: 20100128
  Receipt Date: 20090527
  Transmission Date: 20100710
  Serious: No
  Sender: FDA-Public Use
  Company Number: A0786444A

PATIENT
  Age: 59 Year
  Sex: Female

DRUGS (3)
  1. WELLBUTRIN [Suspect]
     Indication: PANIC DISORDER
     Dosage: 400MG PER DAY
     Route: 048
     Dates: start: 19960101
  2. WELLBUTRIN [Suspect]
     Route: 048
  3. VITAMINS [Concomitant]

REACTIONS (6)
  - ANXIETY [None]
  - BLOOD PRESSURE NORMAL [None]
  - DRUG INEFFECTIVE [None]
  - FEAR [None]
  - FEELING ABNORMAL [None]
  - HEART RATE INCREASED [None]
